FAERS Safety Report 24777971 (Version 1)
Quarter: 2024Q4

REPORT INFORMATION
  Report Type: Spontaneous
  Country: US (occurrence: US)
  Receive Date: 20241226
  Receipt Date: 20241226
  Transmission Date: 20250115
  Serious: Yes (Other)
  Sender: FRESENIUS KABI
  Company Number: US-FreseniusKabi-FK202419292

PATIENT
  Age: 72 Year
  Sex: Female

DRUGS (3)
  1. OXALIPLATIN [Suspect]
     Active Substance: OXALIPLATIN
     Indication: Endometrial cancer
     Dosage: FOLFOX
  2. FLUOROURACIL [Suspect]
     Active Substance: FLUOROURACIL
     Indication: Endometrial cancer
     Dosage: FOLFOX
  3. LEUCOVORIN [Suspect]
     Active Substance: LEUCOVORIN\LEUCOVORIN CALCIUM
     Indication: Endometrial cancer
     Dosage: FOLFOX

REACTIONS (1)
  - Interstitial lung disease [Recovering/Resolving]
